FAERS Safety Report 25126510 (Version 1)
Quarter: 2025Q1

REPORT INFORMATION
  Report Type: Spontaneous
  Country: GB (occurrence: GB)
  Receive Date: 20250327
  Receipt Date: 20250327
  Transmission Date: 20250408
  Serious: Yes (Hospitalization, Other)
  Sender: DEXCEL
  Company Number: None

PATIENT
  Age: 71 Year
  Sex: Female

DRUGS (6)
  1. VENLAFAXINE [Suspect]
     Active Substance: VENLAFAXINE HYDROCHLORIDE
  2. LOSARTAN [Suspect]
     Active Substance: LOSARTAN
  3. INDAPAMIDE [Suspect]
     Active Substance: INDAPAMIDE
  4. OMEPRAZOLE [Suspect]
     Active Substance: OMEPRAZOLE
  5. RISPERIDONE [Suspect]
     Active Substance: RISPERIDONE
  6. RISPERIDONE [Suspect]
     Active Substance: RISPERIDONE

REACTIONS (2)
  - Hyponatraemia [Not Recovered/Not Resolved]
  - Blood prolactin increased [Unknown]
